FAERS Safety Report 7929823-9 (Version None)
Quarter: 2011Q4

REPORT INFORMATION
  Report Type: 
  Country: None (occurrence: None)
  Receive Date: 20111121
  Receipt Date: 20111110
  Transmission Date: 20120403
  Serious: Yes (Hospitalization)
  Sender: FDA-Public Use
  Company Number: US-BRISTOL-MYERS SQUIBB COMPANY-16227472

PATIENT
  Age: 15 Year
  Sex: Male
  Weight: 56 kg

DRUGS (10)
  1. CYCLOPHOSPHAMIDE [Suspect]
     Indication: ACUTE LYMPHOCYTIC LEUKAEMIA
     Dosage: LAST ADMINISTERED DATE:10/07/2011, LAST DOSE:10/JUL/2011.
     Dates: start: 20100914
  2. HYDROCORTISONE [Suspect]
     Indication: ACUTE LYMPHOCYTIC LEUKAEMIA
     Dates: start: 20100914
  3. MERCAPTOPURINE [Suspect]
     Indication: ACUTE LYMPHOCYTIC LEUKAEMIA
     Dosage: LAST ADMINISTERED DATE:20/06/2011,LAST DOSE:20/JUNE/2011.
     Dates: start: 20100914
  4. METHOTREXATE [Suspect]
     Indication: ACUTE LYMPHOCYTIC LEUKAEMIA
     Dosage: LAST ADMINISTERED DATE:06/07/2011,LAST DOSE:06/JUL/2011.
     Dates: start: 20110914
  5. DASATINIB [Suspect]
     Indication: ACUTE LYMPHOCYTIC LEUKAEMIA
     Dosage: LAST ADMINISTERED DATE:02/AUG/2011.LAST DOSE:02/AUG/2011.60MG/M2.
     Route: 048
     Dates: start: 20100914
  6. CYTARABINE [Suspect]
     Indication: ACUTE LYMPHOCYTIC LEUKAEMIA
     Dosage: LAST ADMINISTERED DATE:06/07/2011.
     Dates: start: 20100914
  7. ETOPOSIDE [Suspect]
     Indication: ACUTE LYMPHOCYTIC LEUKAEMIA
     Dosage: LAST DOSE:10/JUL/2011, LAST ADMINISTERED:10/07/2011.
     Dates: start: 20110914
  8. VINCRISTINE SULFATE [Suspect]
     Indication: ACUTE LYMPHOCYTIC LEUKAEMIA
     Dosage: LAST ADMINISTERED DATE:06/07/2011, LAST DOSE:06/JUL/2011.
     Dates: start: 20100914
  9. ETOPOSIDE [Suspect]
     Dosage: LAST ADMINISTERED DATE:10/07/2011
     Dates: start: 20110914
  10. PREDNISONE TAB [Suspect]
     Indication: ACUTE LYMPHOCYTIC LEUKAEMIA
     Dosage: LAST ADMINISTERED DATE:10/07/2011,LAST DOSE:10/JUL/2011.
     Dates: start: 20100914

REACTIONS (4)
  - HYPOKALAEMIA [None]
  - ORAL PAIN [None]
  - HYPONATRAEMIA [None]
  - DEHYDRATION [None]
